FAERS Safety Report 22332140 (Version 3)
Quarter: 2023Q2

REPORT INFORMATION
  Report Type: Report from Study
  Country: US (occurrence: US)
  Receive Date: 20230517
  Receipt Date: 20230601
  Transmission Date: 20230721
  Serious: Yes (Hospitalization)
  Sender: FDA-Public Use
  Company Number: US-BIOGEN-2023BI01205432

PATIENT
  Age: 49 Year
  Sex: Female

DRUGS (1)
  1. TYSABRI [Suspect]
     Active Substance: NATALIZUMAB
     Indication: Multiple sclerosis
     Dosage: INFUSED OVER 1 HOUR
     Route: 050
     Dates: start: 20190529

REACTIONS (7)
  - Opportunistic infection [Unknown]
  - Fall [Recovered/Resolved]
  - Muscular weakness [Unknown]
  - Mobility decreased [Unknown]
  - Product dose omission issue [Unknown]
  - SARS-CoV-2 test positive [Unknown]
  - Multiple sclerosis relapse [Unknown]

NARRATIVE: CASE EVENT DATE: 20221201
